FAERS Safety Report 4410825-4 (Version None)
Quarter: 2004Q3

REPORT INFORMATION
  Report Type: 
  Country: None (occurrence: None)
  Receive Date: 20040726
  Receipt Date: 20040712
  Transmission Date: 20050211
  Serious: Yes (Life-Threatening, Hospitalization)
  Sender: FDA-Public Use
  Company Number: 2004_000062

PATIENT
  Sex: Female

DRUGS (2)
  1. DEPOCYT [Suspect]
     Indication: METASTASES TO MENINGES
     Dosage: 50 MG; X1; INTRATHECAL
     Route: 037
     Dates: start: 20040623, end: 20040623
  2. GEMCITABINE [Concomitant]

REACTIONS (7)
  - ARACHNOIDITIS [None]
  - CONVULSION [None]
  - HYDROCEPHALUS [None]
  - HYPONATRAEMIA [None]
  - INAPPROPRIATE ANTIDIURETIC HORMONE SECRETION [None]
  - MENTAL IMPAIRMENT [None]
  - RESPIRATORY ARREST [None]
